FAERS Safety Report 6723420-9 (Version None)
Quarter: 2010Q2

REPORT INFORMATION
  Report Type: 
  Country: None (occurrence: None)
  Receive Date: 20100513
  Receipt Date: 20100503
  Transmission Date: 20101027
  Serious: Yes (Other)
  Sender: FDA-Public Use
  Company Number: PHHY2010DE28724

PATIENT
  Sex: Male

DRUGS (1)
  1. CERTICAN [Suspect]
     Indication: HEART TRANSPLANT
     Dosage: UNK
     Route: 048
     Dates: start: 20090101

REACTIONS (1)
  - COLITIS [None]
